FAERS Safety Report 6369634-1 (Version None)
Quarter: 2009Q3

REPORT INFORMATION
  Report Type: 
  Country: None (occurrence: None)
  Receive Date: 20090918
  Receipt Date: 20090909
  Transmission Date: 20100115
  Serious: Yes (Other)
  Sender: FDA-Public Use
  Company Number: APP200900583

PATIENT
  Age: 52 Year
  Sex: Female
  Weight: 71.6683 kg

DRUGS (9)
  1. METHOTREXATE INJECTION USP (METHOTREXATE SODIUM) [Suspect]
     Indication: RHEUMATOID ARTHRITIS
     Dates: start: 20080301
  2. METHOTREXATE (METHOTREXATE) [Suspect]
     Indication: RHEUMATOID ARTHRITIS
     Dosage: ORAL
     Route: 048
     Dates: start: 20071201, end: 20080301
  3. PLAQUENIL [Suspect]
     Indication: RHEUMATOID ARTHRITIS
     Dosage: 400 MG, 1 IN 1 D, ORAL
     Route: 048
     Dates: start: 20010101
  4. PLAVIX [Suspect]
     Indication: CORONARY ARTERY OCCLUSION
     Dosage: 75 MG, 1 IN 1 D, ORAL
     Route: 048
     Dates: start: 20090101
  5. PLAVIX [Suspect]
     Indication: STENT PLACEMENT
     Dosage: 75 MG, 1 IN 1 D, ORAL
     Route: 048
     Dates: start: 20090101
  6. ENBREL [Suspect]
     Indication: RHEUMATOID ARTHRITIS
     Dates: start: 20071201, end: 20090701
  7. ASPIRIN [Concomitant]
  8. RANITIDINE [Concomitant]
  9. METOPROLOL SUCCINATE [Concomitant]

REACTIONS (11)
  - ANGINA PECTORIS [None]
  - ANKLE FRACTURE [None]
  - CARDIAC FAILURE [None]
  - CORONARY ARTERY OCCLUSION [None]
  - FALL [None]
  - FOOT FRACTURE [None]
  - GAIT DISTURBANCE [None]
  - GASTROINTESTINAL DISORDER [None]
  - PULMONARY HYPERTENSION [None]
  - RIGHT VENTRICULAR FAILURE [None]
  - ROSACEA [None]
